FAERS Safety Report 18736059 (Version 1)
Quarter: 2021Q1

REPORT INFORMATION
  Report Type: Spontaneous
  Country: US (occurrence: US)
  Receive Date: 20210113
  Receipt Date: 20210113
  Transmission Date: 20210419
  Serious: No
  Sender: FDA-Public Use
  Company Number: US-ELI_LILLY_AND_COMPANY-US202101004607

PATIENT
  Sex: Male

DRUGS (3)
  1. HUMULIN R [Suspect]
     Active Substance: INSULIN HUMAN
     Dosage: 5 U, UNKNOWN
     Route: 065
     Dates: start: 20210107
  2. TRULICITY [Suspect]
     Active Substance: DULAGLUTIDE
     Indication: HYPERTENSION
     Dosage: 0.75 MG, UNKNOWN
     Route: 065
  3. HUMULIN R [Suspect]
     Active Substance: INSULIN HUMAN
     Indication: HYPERTENSION
     Dosage: UNK UNK, UNKNOWN
     Route: 065

REACTIONS (2)
  - Hypertension [Unknown]
  - Off label use [Unknown]
